FAERS Safety Report 16138309 (Version 1)
Quarter: 2019Q2

REPORT INFORMATION
  Report Type: Spontaneous
  Country: FR (occurrence: FR)
  Receive Date: 20190401
  Receipt Date: 20190401
  Transmission Date: 20190711
  Serious: Yes (Death)
  Sender: FDA-Public Use
  Company Number: FR-ROCHE-2285866

PATIENT
  Age: 99 Year
  Sex: Female
  Weight: 67 kg

DRUGS (7)
  1. ZYMAD [Concomitant]
     Active Substance: CHOLECALCIFEROL
     Indication: HYPOVITAMINOSIS
     Route: 048
     Dates: start: 20171017, end: 20190115
  2. BISOCE [Concomitant]
     Active Substance: BISOPROLOL
     Indication: CARDIAC FAILURE CHRONIC
     Route: 048
     Dates: start: 20171017, end: 20190215
  3. TAMIFLU [Suspect]
     Active Substance: OSELTAMIVIR PHOSPHATE
     Indication: ANTIVIRAL PROPHYLAXIS
     Route: 048
     Dates: start: 20190208, end: 20190213
  4. BEPANTHEN (FRANCE) [Concomitant]
     Indication: DERMATITIS
     Route: 003
     Dates: start: 20180115, end: 20190215
  5. DOLIPRANE [Suspect]
     Active Substance: ACETAMINOPHEN
     Indication: PAIN
     Route: 048
     Dates: start: 20190208, end: 20190213
  6. CANDESARTAN. [Concomitant]
     Active Substance: CANDESARTAN
     Indication: CARDIAC FAILURE CHRONIC
     Route: 048
     Dates: start: 20181222, end: 20190215
  7. EUPANTOL [Concomitant]
     Active Substance: PANTOPRAZOLE SODIUM
     Indication: PROPHYLAXIS AGAINST GASTROINTESTINAL ULCER
     Route: 048
     Dates: start: 20171017, end: 20190215

REACTIONS (3)
  - Flank pain [Fatal]
  - Rectal haemorrhage [Fatal]
  - Vomiting [Fatal]

NARRATIVE: CASE EVENT DATE: 20190214
